FAERS Safety Report 5085933-8 (Version None)
Quarter: 2006Q3

REPORT INFORMATION
  Report Type: 
  Country: None (occurrence: None)
  Receive Date: 20060817
  Receipt Date: 20060802
  Transmission Date: 20061208
  Serious: Yes (Hospitalization)
  Sender: FDA-Public Use
  Company Number: 2006084626

PATIENT
  Age: 61 Year
  Sex: Male
  Weight: 77.7 kg

DRUGS (13)
  1. IRINOTECAN HCL [Suspect]
     Indication: SMALL CELL LUNG CANCER STAGE UNSPECIFIED
     Dosage: 100 MG (INTERMITTENT), INTRAVENOUS
     Route: 042
     Dates: start: 20060608, end: 20060615
  2. PLATOSIN (CISPLATIN) [Concomitant]
  3. CODEINE PHOSPHATE (CODEINE PHOSPHATE) [Concomitant]
  4. HANGE-SHASHIN-TO (HERBAL PREPARATION) [Concomitant]
  5. SOLITA-T3 INJECTION (POTASSIUM CHLORIDE, SODIUM CHLORIDE, SODIUM LACTA [Concomitant]
  6. NASEA (RAMOSETRON HYDROCHLORIDE) [Concomitant]
  7. HEPARIN SODIUM [Concomitant]
  8. MANNIGEN (MANNITOL) [Concomitant]
  9. SEISHOKU (SODIUM CHLORIDE) [Concomitant]
  10. PHYSISALZ (SODIUM CHLORIDE) [Concomitant]
  11. DECADRON [Concomitant]
  12. LAC B (LACTOBACILLUS BIFIDUS, LYOPHILIZED) [Concomitant]
  13. LACTATED RINGER'S [Concomitant]

REACTIONS (4)
  - ANGINA PECTORIS [None]
  - BRADYARRHYTHMIA [None]
  - ELECTROCARDIOGRAM ST SEGMENT ELEVATION [None]
  - PRINZMETAL ANGINA [None]
